FAERS Safety Report 9851970 (Version 1)
Quarter: 2014Q1

REPORT INFORMATION
  Report Type: Report from Study
  Country: CA (occurrence: CA)
  Receive Date: 20140129
  Receipt Date: 20140129
  Transmission Date: 20141002
  Serious: Yes (Death, Hospitalization)
  Sender: FDA-Public Use
  Company Number: CA-JNJFOC-20140116053

PATIENT
  Age: 72 Year
  Sex: Male
  Weight: 95 kg

DRUGS (1)
  1. REMICADE [Suspect]
     Indication: RHEUMATOID ARTHRITIS
     Route: 042
     Dates: start: 20110714, end: 20131104

REACTIONS (6)
  - Depressed level of consciousness [Unknown]
  - Hypercalcaemia [Unknown]
  - Stress [Unknown]
  - Confusional state [Unknown]
  - Pneumonia aspiration [Unknown]
  - Death [Fatal]
